FAERS Safety Report 7791945-3 (Version None)
Quarter: 2011Q4

REPORT INFORMATION
  Report Type: 
  Country: None (occurrence: None)
  Receive Date: 20111003
  Receipt Date: 20110926
  Transmission Date: 20120403
  Serious: Yes (Hospitalization, Other)
  Sender: FDA-Public Use
  Company Number: CA-JNJFOC-20110912197

PATIENT
  Sex: Male

DRUGS (1)
  1. XARELTO [Suspect]
     Indication: KNEE OPERATION
     Route: 048

REACTIONS (1)
  - DEEP VEIN THROMBOSIS [None]
